FAERS Safety Report 9806984 (Version 1)
Quarter: 2014Q1

REPORT INFORMATION
  Report Type: Report from Study
  Country: US (occurrence: US)
  Receive Date: 20140109
  Receipt Date: 20140109
  Transmission Date: 20141002
  Serious: Yes (Death)
  Sender: FDA-Public Use
  Company Number: US-ROCHE-1331298

PATIENT
  Age: 53 Year
  Sex: Male

DRUGS (7)
  1. AVASTIN [Suspect]
     Indication: LUNG NEOPLASM MALIGNANT
     Route: 065
  2. AVASTIN [Suspect]
     Indication: RECTOSIGMOID CANCER
  3. AVASTIN [Suspect]
     Indication: HEPATIC CANCER
  4. AVASTIN [Suspect]
     Indication: BONE CANCER
  5. 5-FU [Concomitant]
  6. OXALIPLATIN [Concomitant]
  7. FOLINIC ACID [Concomitant]

REACTIONS (1)
  - Death [Fatal]
